FAERS Safety Report 25043335 (Version 2)
Quarter: 2025Q1

REPORT INFORMATION
  Report Type: Spontaneous
  Country: GR (occurrence: GR)
  Receive Date: 20250305
  Receipt Date: 20250312
  Transmission Date: 20250408
  Serious: Yes (Other)
  Sender: ABBVIE
  Company Number: None

PATIENT
  Age: 35 Year

DRUGS (3)
  1. ESCITALOPRAM [Suspect]
     Active Substance: ESCITALOPRAM OXALATE
     Indication: Product used for unknown indication
     Route: 065
  2. TESTOSTERONE [Suspect]
     Active Substance: TESTOSTERONE
     Indication: Klinefelter^s syndrome
     Dosage: 1000 MILLIGRAM
     Route: 030
  3. TESTOSTERONE [Suspect]
     Active Substance: TESTOSTERONE
     Indication: Klinefelter^s syndrome
     Route: 065

REACTIONS (4)
  - Unmasking of previously unidentified disease [Recovered/Resolved]
  - Brugada syndrome [Recovered/Resolved]
  - Loss of consciousness [Recovered/Resolved]
  - Condition aggravated [Recovered/Resolved]
